FAERS Safety Report 9830450 (Version 2)
Quarter: 2014Q2

REPORT INFORMATION
  Report Type: Spontaneous
  Country: US (occurrence: US)
  Receive Date: 20140120
  Receipt Date: 20140625
  Transmission Date: 20141212
  Serious: Yes (Death, Life-Threatening, Hospitalization, Other)
  Sender: FDA-Public Use
  Company Number: US-009507513-1401USA007740

PATIENT
  Sex: Female
  Weight: 58.96 kg

DRUGS (1)
  1. JANUVIA [Suspect]
     Indication: TYPE 2 DIABETES MELLITUS
     Dosage: 100 MG, QD
     Route: 048
     Dates: start: 20111013, end: 20120406

REACTIONS (25)
  - Pancreatic carcinoma metastatic [Unknown]
  - Pancreaticoduodenectomy [Unknown]
  - Soft tissue flap operation [Unknown]
  - Cholecystectomy [Unknown]
  - Lobar pneumonia [Fatal]
  - Metastases to lymph nodes [Unknown]
  - Lymphadenectomy [Unknown]
  - Radiotherapy [Unknown]
  - Klebsiella infection [Unknown]
  - Tumour invasion [Unknown]
  - Biliary sphincterotomy [Unknown]
  - Bile duct stent insertion [Unknown]
  - Renal cyst [Unknown]
  - Diverticulum intestinal [Unknown]
  - Pulmonary mass [Unknown]
  - Atelectasis [Unknown]
  - Wheezing [Unknown]
  - Cardiac failure congestive [Unknown]
  - Influenza [Unknown]
  - Sleep apnoea syndrome [Unknown]
  - Hepatitis C [Unknown]
  - Stress urinary incontinence [Unknown]
  - Hysterectomy [Unknown]
  - Umbilical hernia repair [Unknown]
  - Incisional hernia repair [Unknown]
